FAERS Safety Report 9833277 (Version 2)
Quarter: 2014Q1

REPORT INFORMATION
  Report Type: Spontaneous
  Country: JP (occurrence: JP)
  Receive Date: 20140121
  Receipt Date: 20140331
  Transmission Date: 20141002
  Serious: Yes (Death, Other)
  Sender: FDA-Public Use
  Company Number: JP-PFIZER INC-2014014225

PATIENT
  Age: 79 Year
  Sex: Female
  Weight: 62 kg

DRUGS (7)
  1. OLMETEC [Suspect]
     Dosage: 20 MG, 1X/DAY
     Route: 048
     Dates: end: 20130406
  2. FAMOTIDINE [Suspect]
     Dosage: 20 MG, 1X/DAY
     Route: 048
     Dates: end: 20130406
  3. MEVALOTIN [Suspect]
     Dosage: 10 MG, 1X/DAY
     Route: 048
     Dates: end: 20130406
  4. LOXONIN [Suspect]
     Indication: FRACTURE
     Dosage: WHEN PAINFUL (60 MG), AS NEEDED
     Route: 048
     Dates: end: 20130406
  5. LOXONIN [Suspect]
     Indication: PAIN
  6. SOLON [Suspect]
     Indication: PAIN
     Dosage: WHEN PAINFUL (1 DF), AS NEEDED
     Route: 048
     Dates: end: 20130406
  7. SENEVACUL [Suspect]
     Indication: CONSTIPATION
     Dosage: WHEN CONSTIPATION (1 DF), AS NEEDED
     Route: 048
     Dates: end: 20130406

REACTIONS (2)
  - Hepatitis fulminant [Fatal]
  - Prothrombin time shortened [Unknown]
